FAERS Safety Report 6886944-X (Version None)
Quarter: 2010Q3

REPORT INFORMATION
  Report Type: 
  Country: None (occurrence: None)
  Receive Date: 20100730
  Receipt Date: 20100720
  Transmission Date: 20110219
  Serious: Yes (Other)
  Sender: FDA-Public Use
  Company Number: FR-JNJFOC-20100706778

PATIENT
  Age: 31 Year
  Sex: Female
  Weight: 81 kg

DRUGS (4)
  1. INFLIXIMAB, RECOMBINANT [Suspect]
     Indication: PSORIASIS
     Route: 042
  2. INFLIXIMAB, RECOMBINANT [Suspect]
     Route: 042
  3. RIFAMATE [Suspect]
     Indication: ANTIBIOTIC PROPHYLAXIS
     Route: 048
  4. NORDETTE-21 [Suspect]
     Indication: CONTRACEPTION
     Route: 048

REACTIONS (2)
  - DRUG EXPOSURE DURING PREGNANCY [None]
  - PREGNANCY ON ORAL CONTRACEPTIVE [None]
